FAERS Safety Report 23837202 (Version 1)
Quarter: 2024Q2

REPORT INFORMATION
  Report Type: Spontaneous
  Country: FR (occurrence: FR)
  Receive Date: 20240509
  Receipt Date: 20240509
  Transmission Date: 20240716
  Serious: Yes (Hospitalization)
  Sender: FDA-Public Use
  Company Number: FR-SUN PHARMACEUTICAL INDUSTRIES LTD-2024RR-445725

PATIENT
  Age: 39 Year
  Sex: Male

DRUGS (1)
  1. TILDRAKIZUMAB [Suspect]
     Active Substance: TILDRAKIZUMAB
     Indication: Psoriasis
     Dosage: 100 MILLIGRAM INJECTION EVERY 12 WEEKS
     Route: 058
     Dates: start: 20230801, end: 20240307

REACTIONS (6)
  - Urticaria [Recovered/Resolved]
  - Fatigue [Recovered/Resolved]
  - Injection site erythema [Recovered/Resolved]
  - Asthenospermia [Unknown]
  - Teratospermia [Unknown]
  - White blood cells semen positive [Unknown]

NARRATIVE: CASE EVENT DATE: 20230901
